FAERS Safety Report 9941613 (Version 1)
Quarter: 2014Q1

REPORT INFORMATION
  Report Type: Report from Study
  Country: US (occurrence: US)
  Receive Date: 20140303
  Receipt Date: 20140303
  Transmission Date: 20141002
  Serious: Yes (Hospitalization)
  Sender: FDA-Public Use
  Company Number: US-ABBVIE-13P-163-1039442-00

PATIENT
  Age: 64 Year
  Sex: Male

DRUGS (17)
  1. HUMIRA [Suspect]
     Indication: RHEUMATOID ARTHRITIS
     Dates: start: 20130114, end: 20130114
  2. HUMIRA [Suspect]
     Dates: start: 20130121, end: 20130121
  3. HUMIRA [Suspect]
  4. HUMIRA [Suspect]
  5. METHOTREXATE [Concomitant]
     Indication: RHEUMATOID ARTHRITIS
     Dosage: 2.5 X 6 ON WEDS.
  6. HYDROXYCHLOROQUINE [Concomitant]
     Indication: RHEUMATOID ARTHRITIS
  7. METFORMIN [Concomitant]
     Indication: DIABETES MELLITUS
  8. VITAMIN B12 [Concomitant]
     Indication: PRODUCT USED FOR UNKNOWN INDICATION
     Dosage: DAILY
  9. METOPROLOL [Concomitant]
     Indication: HYPERTENSION
  10. LASIX [Concomitant]
     Indication: FLUID RETENTION
  11. KLOR CON [Concomitant]
     Indication: ELECTROLYTE SUBSTITUTION THERAPY
  12. ASA [Concomitant]
     Indication: ANTICOAGULANT THERAPY
  13. FOLIC ACID [Concomitant]
     Indication: PRODUCT USED FOR UNKNOWN INDICATION
     Dosage: 1MG QPM
  14. NIACIN [Concomitant]
     Indication: CARDIAC DISORDER
     Dosage: QHS
  15. SIMVASTATIN [Concomitant]
     Indication: BLOOD CHOLESTEROL INCREASED
     Dosage: 20MG QHS
  16. PERCOCET [Concomitant]
     Indication: PAIN
     Dosage: Q4H PRN
  17. ALENDRONATE [Concomitant]
     Indication: BONE DISORDER
     Dosage: 70MG QW ON TUESDAY

REACTIONS (4)
  - Coronary artery bypass [Recovered/Resolved]
  - Mitral valve replacement [Recovered/Resolved]
  - Musculoskeletal pain [Not Recovered/Not Resolved]
  - Rheumatoid arthritis [Unknown]
